FAERS Safety Report 14720036 (Version 7)
Quarter: 2018Q4

REPORT INFORMATION
  Report Type: Spontaneous
  Country: PT (occurrence: PT)
  Receive Date: 20180405
  Receipt Date: 20181006
  Transmission Date: 20190204
  Serious: Yes (Other)
  Sender: FDA-Public Use
  Company Number: PT-AUROBINDO-AUR-APL-2018-018326

PATIENT
  Age: 56 Year
  Sex: Male

DRUGS (2)
  1. LISINOPRIL TABLET [Suspect]
     Active Substance: LISINOPRIL
     Indication: ALBUMINURIA
     Dosage: 10 MILLIGRAM, ONCE A DAY
     Route: 048
  2. LISINOPRIL TABLET [Suspect]
     Active Substance: LISINOPRIL
     Indication: MICROALBUMINURIA

REACTIONS (8)
  - Renal tubular acidosis [Unknown]
  - Condition aggravated [Unknown]
  - Hyperkalaemia [Unknown]
  - Metabolic acidosis [Unknown]
  - Product use in unapproved indication [Unknown]
  - Concomitant disease aggravated [Unknown]
  - Acidosis hyperchloraemic [Unknown]
  - Blood potassium increased [Unknown]
